FAERS Safety Report 5442637-7 (Version None)
Quarter: 2007Q3

REPORT INFORMATION
  Report Type: 
  Country: None (occurrence: None)
  Receive Date: 20070904
  Receipt Date: 20070828
  Transmission Date: 20080115
  Serious: Yes (Death, Hospitalization)
  Sender: FDA-Public Use
  Company Number: FR-SANOFI-SYNTHELABO-A02200702539

PATIENT
  Age: 79 Year
  Sex: Male

DRUGS (4)
  1. DIGITALINE NATIVELLE [Suspect]
     Indication: DRUG USE FOR UNKNOWN INDICATION
     Route: 048
     Dates: end: 20070711
  2. PERINDOPRIL ERBUMINE [Suspect]
     Indication: DRUG USE FOR UNKNOWN INDICATION
     Route: 048
     Dates: end: 20070711
  3. AMIODARONE HCL [Suspect]
     Indication: ATRIAL FIBRILLATION
     Route: 048
  4. PLAVIX [Suspect]
     Indication: ARTERIAL DISORDER
     Route: 048
     Dates: end: 20070711

REACTIONS (3)
  - DYSPNOEA [None]
  - HYPOXIA [None]
  - LUNG DISORDER [None]
